FAERS Safety Report 4974040-8 (Version None)
Quarter: 2006Q2

REPORT INFORMATION
  Report Type: 
  Country: None (occurrence: None)
  Receive Date: 20060417
  Receipt Date: 20060413
  Transmission Date: 20061013
  Serious: Yes (Hospitalization, Other)
  Sender: FDA-Public Use
  Company Number: CA-JNJFOC-20060403213

PATIENT
  Age: 76 Year
  Sex: Male

DRUGS (8)
  1. LEVAQUIN [Suspect]
     Indication: PNEUMONIA
     Route: 048
  2. VITAMIN B6 [Concomitant]
  3. VITAMIN E [Concomitant]
  4. ZINC [Concomitant]
  5. SELENIUM SULFIDE [Concomitant]
  6. LUTEIN [Concomitant]
  7. VITAMIN B COMPLEX CAP [Concomitant]
  8. ASCORBIC ACID [Concomitant]

REACTIONS (4)
  - BLINDNESS [None]
  - DRUG PRESCRIBING ERROR [None]
  - MACULAR DEGENERATION [None]
  - OVERDOSE [None]
